FAERS Safety Report 4511155-2 (Version None)
Quarter: 2004Q4

REPORT INFORMATION
  Report Type: 
  Country: None (occurrence: None)
  Receive Date: 20041012
  Receipt Date: 20040802
  Transmission Date: 20050328
  Serious: Yes (Other)
  Sender: FDA-Public Use
  Company Number: A03200402550

PATIENT
  Age: 80 Year
  Sex: Male

DRUGS (6)
  1. UROXATRAL [Suspect]
     Indication: URINARY RETENTION
     Dosage: 10 MG OD - ORAL
     Route: 048
     Dates: start: 20040715
  2. METFORMIN HCL [Concomitant]
  3. ATORVASTATIN CALCIUM [Concomitant]
  4. FINASTERIDE [Concomitant]
  5. CELECOXIB [Concomitant]
  6. PHENYTOIN SODIUM [Concomitant]

REACTIONS (2)
  - HYPOTENSION [None]
  - LOSS OF CONSCIOUSNESS [None]
